FAERS Safety Report 5581455-6 (Version None)
Quarter: 2007Q4

REPORT INFORMATION
  Report Type: 
  Country: None (occurrence: None)
  Receive Date: 20071231
  Receipt Date: 20071231
  Transmission Date: 20080405
  Serious: Yes (Life-Threatening)
  Sender: FDA-Public Use
  Company Number: None

PATIENT
  Age: 51 Year
  Sex: Male
  Weight: 83.9154 kg

DRUGS (1)
  1. CRESTOR [Suspect]
     Indication: BLOOD CHOLESTEROL INCREASED
     Dosage: 20MG  DAILY  PO
     Route: 048
     Dates: start: 20030501, end: 20061230

REACTIONS (5)
  - AMYOTROPHIC LATERAL SCLEROSIS [None]
  - BLOOD CREATINE PHOSPHOKINASE INCREASED [None]
  - PERONEAL NERVE PALSY [None]
  - RETIREMENT [None]
  - WHEELCHAIR USER [None]
